FAERS Safety Report 12287281 (Version 1)
Quarter: 2016Q2

REPORT INFORMATION
  Report Type: Report from Study
  Country: US (occurrence: US)
  Receive Date: 20160420
  Receipt Date: 20160420
  Transmission Date: 20160815
  Serious: Yes (Other)
  Sender: FDA-Public Use
  Company Number: US-AMGEN-USASL2016048034

PATIENT
  Age: 88 Year
  Sex: Female

DRUGS (7)
  1. SIMVASTATIN. [Concomitant]
     Active Substance: SIMVASTATIN
     Dosage: 20 MG, QD
  2. CITALOPRAM [Concomitant]
     Active Substance: CITALOPRAM HYDROBROMIDE
     Dosage: 10 MG, QD
  3. PROLIA [Suspect]
     Active Substance: DENOSUMAB
     Indication: OSTEOPOROSIS
     Dosage: UNK
     Route: 065
  4. INDERAL [Concomitant]
     Active Substance: PROPRANOLOL HYDROCHLORIDE
     Dosage: 80 MG, QD
  5. PROCRIT [Concomitant]
     Active Substance: ERYTHROPOIETIN
     Dosage: INTERMITTENTLY
  6. PRESERVISION [Concomitant]
     Active Substance: MINERALS\VITAMINS
     Indication: DRY AGE-RELATED MACULAR DEGENERATION
     Dosage: UNK UNK, BID
  7. FOLBEE [Concomitant]
     Active Substance: CYANOCOBALAMIN\FOLIC ACID\PYRIDOXINE HYDROCHLORIDE
     Indication: PERIPHERAL VASCULAR DISORDER
     Dosage: UNK

REACTIONS (5)
  - VIIIth nerve injury [Unknown]
  - Temporomandibular joint syndrome [Unknown]
  - Back pain [Not Recovered/Not Resolved]
  - Spinal compression fracture [Unknown]
  - Exostosis of jaw [Unknown]

NARRATIVE: CASE EVENT DATE: 2016
